FAERS Safety Report 4380294-1 (Version None)
Quarter: 2004Q2

REPORT INFORMATION
  Report Type: 
  Country: None (occurrence: None)
  Receive Date: 20040618
  Receipt Date: 20040614
  Transmission Date: 20050107
  Serious: Yes (Other)
  Sender: FDA-Public Use
  Company Number: DE-BRISTOL-MYERS SQUIBB COMPANY-12613683

PATIENT
  Age: 37 Year
  Sex: Female

DRUGS (4)
  1. CYCLOPHOSPHAMIDE [Suspect]
     Indication: BREAST CANCER
  2. ADRIAMYCIN PFS [Suspect]
     Indication: BREAST CANCER
  3. ZOFRAN [Concomitant]
  4. METOCLOPRAMIDE HYDROCHLORIDE [Concomitant]

REACTIONS (3)
  - FOETAL GROWTH RETARDATION [None]
  - OLIGOHYDRAMNIOS [None]
  - PREGNANCY [None]
